FAERS Safety Report 9946117 (Version 1)
Quarter: 2014Q1

REPORT INFORMATION
  Report Type: Spontaneous
  Country: US (occurrence: US)
  Receive Date: 20140303
  Receipt Date: 20140303
  Transmission Date: 20141002
  Serious: No
  Sender: FDA-Public Use
  Company Number: US-AMGEN-USASP2013069663

PATIENT
  Age: 50 Year
  Sex: Female
  Weight: 62.59 kg

DRUGS (12)
  1. ENBREL [Suspect]
     Indication: PRODUCT USED FOR UNKNOWN INDICATION
     Dosage: 50 MG, QWK
     Route: 058
  2. METHOTREXATE [Concomitant]
     Dosage: 200/8 ML
  3. NORTRIPTYLIN [Concomitant]
     Dosage: 50 MG, UNK
  4. TRAZODONE [Concomitant]
     Dosage: 50 MG, UNK
  5. GABAPENTIN [Concomitant]
     Dosage: 300 MG, UNK
  6. FOLIC ACID [Concomitant]
     Dosage: UNK
  7. ZOLOFT [Concomitant]
     Dosage: 25 MG, UNK
  8. OXYCODONE/APAP                     /00867901/ [Concomitant]
     Dosage: 7.5-325
  9. MAGNESIUM [Concomitant]
     Dosage: 400 MG, UNK
  10. PREDNISONE [Concomitant]
     Dosage: 1 MG, UNK
  11. XANAX [Concomitant]
     Dosage: 1 MG, UNK
  12. TYLENOL                            /00020001/ [Concomitant]
     Dosage: 500 MG, UNK

REACTIONS (1)
  - Drug ineffective [Unknown]
